FAERS Safety Report 6558455-2 (Version None)
Quarter: 2010Q1

REPORT INFORMATION
  Report Type: 
  Country: None (occurrence: None)
  Receive Date: 20100126
  Receipt Date: 20100113
  Transmission Date: 20100710
  Serious: Yes (Other)
  Sender: FDA-Public Use
  Company Number: 236262K09USA

PATIENT
  Age: 53 Year
  Sex: Female

DRUGS (2)
  1. REBIF [Suspect]
     Indication: MULTIPLE SCLEROSIS
     Dosage: 44 MCG, 3 IN 1 WEEKS, SUBCUTANEOUS
     Route: 058
     Dates: start: 20030824, end: 20090329
  2. UNSPECIFIED DEPRESSION MEDICATION (ANTIDEPRESSANTS) [Concomitant]

REACTIONS (3)
  - BONE DENSITY DECREASED [None]
  - OSTEOARTHRITIS [None]
  - OSTEONECROSIS [None]
